FAERS Safety Report 5923574-8 (Version None)
Quarter: 2008Q4

REPORT INFORMATION
  Report Type: 
  Country: None (occurrence: None)
  Receive Date: 20081020
  Receipt Date: 20081014
  Transmission Date: 20090506
  Serious: Yes (Death, Other)
  Sender: FDA-Public Use
  Company Number: PHHY2008JP23266

PATIENT
  Age: 77 Year
  Sex: Male
  Weight: 45.7 kg

DRUGS (9)
  1. LOPRESSOR [Suspect]
     Indication: CARDIAC FAILURE
     Dosage: 2.5 MG DAILY
     Route: 048
  2. LOPRESSOR [Suspect]
     Dosage: 15 MG DAILY
     Route: 048
  3. ANTIFUNGAL DRUGS [Concomitant]
     Dosage: UNK
  4. DIURETICS [Concomitant]
     Indication: CARDIAC FAILURE
     Dosage: UNK
  5. DIGOXIN [Concomitant]
     Indication: CARDIAC FAILURE
     Dosage: UNK
  6. TIOTROPIUM BROMIDE [Concomitant]
  7. LOSARTAN [Concomitant]
     Dosage: UNK
  8. BETA BLOCKING AGENTS [Concomitant]
  9. PLATELET AGGREGATION INHIBITORS [Concomitant]

REACTIONS (11)
  - BRONCHOPULMONARY ASPERGILLOSIS [None]
  - CARDIAC FAILURE [None]
  - CARDIOMEGALY [None]
  - CYANOSIS [None]
  - DYSPNOEA [None]
  - HYPERCAPNIA [None]
  - HYPOXIA [None]
  - MALNUTRITION [None]
  - MYOCARDIAL INFARCTION [None]
  - MYOCARDIAL ISCHAEMIA [None]
  - RESPIRATORY FAILURE [None]
